FAERS Safety Report 22274054 (Version 1)
Quarter: 2023Q2

REPORT INFORMATION
  Report Type: Spontaneous
  Country: US (occurrence: None)
  Receive Date: 20230501
  Receipt Date: 20230501
  Transmission Date: 20230722
  Serious: Yes (Other)
  Sender: FDA-Public Use
  Company Number: None

PATIENT
  Age: 70 Year
  Sex: Female

DRUGS (1)
  1. HUMIRA [Suspect]
     Active Substance: ADALIMUMAB
     Indication: Psoriatic arthropathy
     Dosage: 40MG Q 2 WEEKS SQ?
     Route: 058
     Dates: start: 20220304

REACTIONS (1)
  - Psoriatic arthropathy [None]

NARRATIVE: CASE EVENT DATE: 20230417
